FAERS Safety Report 16106427 (Version 1)
Quarter: 2019Q2

REPORT INFORMATION
  Report Type: Spontaneous
  Country: US (occurrence: US)
  Receive Date: 20190321
  Receipt Date: 20190321
  Transmission Date: 20190711
  Serious: Yes (Other)
  Sender: FDA-Public Use
  Company Number: None

PATIENT
  Age: 73 Year
  Sex: Female
  Weight: 72 kg

DRUGS (7)
  1. VITAMIN D3 [Concomitant]
     Active Substance: CHOLECALCIFEROL
  2. MULTI-VITAMIN [Concomitant]
     Active Substance: .ALPHA.-TOCOPHEROL ACETATE, DL-\ASCORBIC ACID\CYANOCOBALAMIN\FLUORIDE ION\FOLIC ACID\NIACIN\PYRIDOXINE\RIBOFLAVIN\THIAMINE\VITAMIN A\VITAMIN D
  3. VITAMIN C [Concomitant]
     Active Substance: ASCORBIC ACID
  4. ARNICARE [Suspect]
     Active Substance: HOMEOPATHICS
     Indication: CONTUSION
     Route: 061
     Dates: start: 20190307, end: 20190311
  5. ARNICARE [Suspect]
     Active Substance: HOMEOPATHICS
     Indication: ARTHRALGIA
     Route: 061
     Dates: start: 20190307, end: 20190311
  6. ELDERBERRY SYRUP [Concomitant]
  7. TYLENOL [Concomitant]
     Active Substance: ACETAMINOPHEN

REACTIONS (5)
  - Fibrin D dimer increased [None]
  - Palpitations [None]
  - Poor quality sleep [None]
  - Insomnia [None]
  - Hypopnoea [None]

NARRATIVE: CASE EVENT DATE: 20190311
